FAERS Safety Report 10393577 (Version 1)
Quarter: 2014Q3

REPORT INFORMATION
  Report Type: Report from Study
  Country: TR (occurrence: TR)
  Receive Date: 20140819
  Receipt Date: 20140819
  Transmission Date: 20150326
  Serious: Yes (Life-Threatening, Hospitalization)
  Sender: FDA-Public Use
  Company Number: TR-BRISTOL-MYERS SQUIBB COMPANY-21308838

PATIENT
  Age: 60 Year
  Sex: Female

DRUGS (11)
  1. THIOCTACID [Concomitant]
     Active Substance: .ALPHA.-LIPOIC ACID
  2. ACETYLSALICYLIC ACID [Concomitant]
     Active Substance: ASPIRIN
  3. VOLTAREN [Concomitant]
     Active Substance: DICLOFENAC SODIUM
  4. AERIUS [Concomitant]
     Active Substance: DESLORATADINE
  5. DIAFORMIN [Suspect]
     Active Substance: METFORMIN HYDROCHLORIDE
  6. AMLODIPINE [Concomitant]
     Active Substance: AMLODIPINE BESYLATE
  7. NEBIVOLOL [Concomitant]
     Active Substance: NEBIVOLOL
  8. ATORVASTATIN [Concomitant]
     Active Substance: ATORVASTATIN
  9. NEXIUM [Concomitant]
     Active Substance: ESOMEPRAZOLE MAGNESIUM
  10. BYETTA [Suspect]
     Active Substance: EXENATIDE
     Indication: TYPE 2 DIABETES MELLITUS
     Route: 058
     Dates: start: 20140520
  11. GABAPENTIN. [Concomitant]
     Active Substance: GABAPENTIN

REACTIONS (5)
  - Decreased appetite [Unknown]
  - Blood glucose increased [Unknown]
  - Vomiting [Unknown]
  - Nausea [Unknown]
  - Syncope [Unknown]

NARRATIVE: CASE EVENT DATE: 2014
